FAERS Safety Report 15186556 (Version 1)
Quarter: 2018Q3

REPORT INFORMATION
  Report Type: Report from Study
  Country: US (occurrence: US)
  Receive Date: 20180723
  Receipt Date: 20180723
  Transmission Date: 20181010
  Serious: No
  Sender: FDA-Public Use
  Company Number: US-EXELIXIS-CABO-18012331

PATIENT
  Sex: Male

DRUGS (11)
  1. CALCIUM [Concomitant]
     Active Substance: CALCIUM
  2. FONDAPARINUX SODIUM. [Concomitant]
     Active Substance: FONDAPARINUX SODIUM
  3. HEPARIN [Concomitant]
     Active Substance: HEPARIN SODIUM
  4. ASPIR 81 [Concomitant]
  5. GABAPENTIN. [Concomitant]
     Active Substance: GABAPENTIN
  6. JANUVIA [Concomitant]
     Active Substance: SITAGLIPTIN PHOSPHATE
  7. AMOXICILLIN. [Concomitant]
     Active Substance: AMOXICILLIN
  8. FIBERCON [Concomitant]
     Active Substance: CALCIUM POLYCARBOPHIL
  9. CABOMETYX [Suspect]
     Active Substance: CABOZANTINIB S-MALATE
     Indication: RENAL CANCER
     Dosage: 60 MG, QD
     Route: 048
     Dates: start: 20170629
  10. CARVEDILOL. [Concomitant]
     Active Substance: CARVEDILOL
  11. IRON [Concomitant]
     Active Substance: IRON

REACTIONS (2)
  - Constipation [Unknown]
  - Nausea [Unknown]
